FAERS Safety Report 5343535-X (Version None)
Quarter: 2007Q2

REPORT INFORMATION
  Report Type: 
  Country: None (occurrence: None)
  Receive Date: 20070604
  Receipt Date: 20070521
  Transmission Date: 20071010
  Serious: Yes (Other)
  Sender: FDA-Public Use
  Company Number: PHFR2007GB01763

PATIENT
  Age: 46 Year
  Sex: Male

DRUGS (7)
  1. MEBEVERINE HYDROCHLORIDE [Concomitant]
     Indication: IRRITABLE BOWEL SYNDROME
     Dosage: 135 MG, TID
     Route: 048
  2. TERBINAFINE [Suspect]
     Indication: ONYCHOMYCOSIS
     Dosage: 250 MG, QD
     Route: 048
     Dates: start: 20070405, end: 20070426
  3. PRIADEL [Concomitant]
     Indication: SCHIZOPHRENIA, PARANOID TYPE
     Dosage: 3 DF, QD
     Route: 048
  4. QVAR 40 [Concomitant]
     Indication: ASTHMA
     Dosage: UNK, PRN
  5. SALBUTAMOL [Concomitant]
     Indication: ASTHMA
     Dosage: UNK, PRN
  6. SERTRALINE [Concomitant]
     Dosage: 50 MG, QD
     Route: 048
  7. TEMAZEPAM [Concomitant]
     Indication: MANIA
     Dosage: 10 MG, QD
     Route: 048

REACTIONS (2)
  - ASTHMA [None]
  - RASH [None]
